FAERS Safety Report 4506629-4 (Version None)
Quarter: 2004Q4

REPORT INFORMATION
  Report Type: 
  Country: None (occurrence: None)
  Receive Date: 20041122
  Receipt Date: 20041028
  Transmission Date: 20050328
  Serious: Yes (Hospitalization, Other)
  Sender: FDA-Public Use
  Company Number: AU-MERCK-0411AUS00177

PATIENT
  Age: 76 Year

DRUGS (1)
  1. ZOCOR [Suspect]
     Indication: BLOOD CHOLESTEROL INCREASED
     Route: 048
     Dates: start: 19920101

REACTIONS (3)
  - DEEP VEIN THROMBOSIS [None]
  - NEOPLASM [None]
  - NEPHRECTOMY [None]
